FAERS Safety Report 25817943 (Version 1)
Quarter: 2025Q3

REPORT INFORMATION
  Report Type: Spontaneous
  Country: US (occurrence: None)
  Receive Date: 20250918
  Receipt Date: 20250918
  Transmission Date: 20251021
  Serious: No
  Sender: FDA-CTU
  Company Number: None

PATIENT
  Age: 26 Year
  Sex: Female
  Weight: 56.25 kg

DRUGS (3)
  1. QELBREE [Suspect]
     Active Substance: VILOXAZINE HYDROCHLORIDE
     Indication: Attention deficit hyperactivity disorder
     Dosage: FREQUENCY : TWICE A DAY;?
     Route: 048
     Dates: start: 20250828, end: 20250916
  2. AUVELITY [Concomitant]
     Active Substance: BUPROPION HYDROCHLORIDE\DEXTROMETHORPHAN HYDROBROMIDE
  3. VRAYLAR [Concomitant]
     Active Substance: CARIPRAZINE

REACTIONS (9)
  - Insurance issue [None]
  - Product use issue [None]
  - Therapy interrupted [None]
  - Headache [None]
  - Cold sweat [None]
  - Vomiting [None]
  - Migraine [None]
  - Chills [None]
  - Withdrawal syndrome [None]

NARRATIVE: CASE EVENT DATE: 20250918
